FAERS Safety Report 21623722 (Version 1)
Quarter: 2022Q4

REPORT INFORMATION
  Report Type: Spontaneous
  Country: US (occurrence: US)
  Receive Date: 20221121
  Receipt Date: 20221121
  Transmission Date: 20230112
  Serious: No
  Sender: FDA-Public Use
  Company Number: US-GE HEALTHCARE-2022CSU007254

PATIENT
  Age: 39 Year
  Sex: Male
  Weight: 101.59 kg

DRUGS (2)
  1. OMNIPAQUE [Suspect]
     Active Substance: IOHEXOL
     Indication: Angiogram
     Dosage: 75 ML, SINGLE
     Route: 042
     Dates: start: 20220929, end: 20220929
  2. OMNIPAQUE [Suspect]
     Active Substance: IOHEXOL
     Indication: Aneurysm
     Dosage: 75 ML, SINGLE
     Route: 042
     Dates: start: 20220929, end: 20220929

REACTIONS (1)
  - Urticaria [Recovered/Resolved]

NARRATIVE: CASE EVENT DATE: 20220929
